FAERS Safety Report 22156705 (Version 1)
Quarter: 2023Q1

REPORT INFORMATION
  Report Type: Spontaneous
  Country: US (occurrence: US)
  Receive Date: 20230330
  Receipt Date: 20230330
  Transmission Date: 20230417
  Serious: Yes (Disabling, Other)
  Sender: FDA-Public Use
  Company Number: US-HORIZON THERAPEUTICS-HZN-2023-002255

PATIENT

DRUGS (2)
  1. TEPEZZA [Suspect]
     Active Substance: TEPROTUMUMAB-TRBW
     Indication: Endocrine ophthalmopathy
     Dosage: FIRST INFUSION (TREATED WITH TEPEZZA BETWEEN JUNE 2020 THROUGH DECEMBER 2020)
     Route: 042
     Dates: start: 202006
  2. TEPEZZA [Suspect]
     Active Substance: TEPROTUMUMAB-TRBW
     Indication: Basedow^s disease
     Dosage: LAST INFUSION (TREATED WITH TEPEZZA BETWEEN JUNE 2020 THROUGH DECEMBER 2020)
     Route: 042
     Dates: start: 202012, end: 202012

REACTIONS (13)
  - Deafness permanent [Unknown]
  - Physical disability [Unknown]
  - Disability [Unknown]
  - Product quality issue [Unknown]
  - Anxiety [Unknown]
  - Economic problem [Unknown]
  - Concomitant disease aggravated [Unknown]
  - Pain [Unknown]
  - Injury [Unknown]
  - Emotional distress [Unknown]
  - Impaired quality of life [Unknown]
  - Discomfort [Unknown]
  - Tinnitus [Unknown]
